FAERS Safety Report 19803912 (Version 1)
Quarter: 2021Q3

REPORT INFORMATION
  Report Type: Spontaneous
  Country: US (occurrence: US)
  Receive Date: 20210903
  Receipt Date: 20210903
  Transmission Date: 20211014
  Serious: Yes (Death, Hospitalization)
  Sender: FDA-Public Use
  Company Number: None

PATIENT
  Age: 6 Year
  Sex: Male
  Weight: 19.7 kg

DRUGS (8)
  1. VINCRISTINE SULFATE. [Suspect]
     Active Substance: VINCRISTINE SULFATE
     Dates: end: 20210823
  2. FAMOTIDINE. [Concomitant]
     Active Substance: FAMOTIDINE
  3. METHOTREXATE. [Suspect]
     Active Substance: METHOTREXATE
     Dates: end: 20210816
  4. ONCASPAR [Suspect]
     Active Substance: PEGASPARGASE
     Dosage: ?          OTHER DOSE:2025 IU;?
     Dates: end: 20210812
  5. SULFAMETHOXAZOLE?TRIMETHOPRIM [Concomitant]
     Active Substance: SULFAMETHOXAZOLE\TRIMETHOPRIM
  6. ONDANSETRON [Concomitant]
     Active Substance: ONDANSETRON
  7. DEXAMTHASONE [Suspect]
     Active Substance: DEXAMETHASONE
     Dates: end: 20210825
  8. CYTARABINE. [Suspect]
     Active Substance: CYTARABINE
     Dates: end: 20210809

REACTIONS (24)
  - Bundle branch block right [None]
  - Haematemesis [None]
  - Respiratory rate increased [None]
  - Diarrhoea [None]
  - Colitis [None]
  - Pulse absent [None]
  - Pulseless electrical activity [None]
  - Visual impairment [None]
  - Oxygen saturation decreased [None]
  - Intestinal ischaemia [None]
  - Pneumatosis [None]
  - Pain [None]
  - Electrocardiogram abnormal [None]
  - Right ventricular hypertrophy [None]
  - Haematochezia [None]
  - Anal ulcer haemorrhage [None]
  - Cardiac arrest [None]
  - Bradycardia [None]
  - Heart rate increased [None]
  - Blood pressure decreased [None]
  - Intestinal dilatation [None]
  - Small intestinal obstruction [None]
  - Flatulence [None]
  - Cardio-respiratory arrest [None]

NARRATIVE: CASE EVENT DATE: 20210825
